FAERS Safety Report 10075933 (Version 1)
Quarter: 2014Q2

REPORT INFORMATION
  Report Type: Spontaneous
  Country: US (occurrence: None)
  Receive Date: 20140411
  Receipt Date: 20140411
  Transmission Date: 20141212
  Serious: Yes (Hospitalization, Other)
  Sender: FDA-Public Use
  Company Number: None

PATIENT
  Age: 78 Year
  Sex: Male
  Weight: 85 kg

DRUGS (1)
  1. GAMMAGARD LIQUID [Suspect]
     Indication: STIFF PERSON SYNDROME
     Dosage: 35 GRAMS  DAILY X 5 DAYS Q4W
     Route: 042
     Dates: start: 20140331, end: 20140404

REACTIONS (3)
  - Unresponsive to stimuli [None]
  - Convulsion [None]
  - Feeling abnormal [None]
